FAERS Safety Report 7985712-5 (Version None)
Quarter: 2011Q4

REPORT INFORMATION
  Report Type: 
  Country: None (occurrence: None)
  Receive Date: 20111216
  Receipt Date: 20111216
  Transmission Date: 20120403
  Serious: Yes (Other)
  Sender: FDA-Public Use
  Company Number: None

PATIENT
  Sex: Female
  Weight: 772.46 kg

DRUGS (2)
  1. VANCOMYCIN HYCHLORIDE [Concomitant]
     Dates: start: 20111212, end: 20111212
  2. VANCOMYCIN HYCHLORIDE [Suspect]
     Indication: ARTHRITIS INFECTIVE
     Dosage: 1.25GM
     Route: 042
     Dates: start: 20111205, end: 20111207

REACTIONS (2)
  - BLOOD CREATINE INCREASED [None]
  - DRUG LEVEL INCREASED [None]
